FAERS Safety Report 5529302-2 (Version None)
Quarter: 2007Q4

REPORT INFORMATION
  Report Type: 
  Country: None (occurrence: None)
  Receive Date: 20071129
  Receipt Date: 20071120
  Transmission Date: 20080405
  Serious: Yes (Death, Hospitalization)
  Sender: FDA-Public Use
  Company Number: US-ROCHE-532793

PATIENT
  Age: 46 Year
  Sex: Female

DRUGS (1)
  1. PEGASYS [Suspect]
     Indication: HEPATITIS C
     Dosage: PATIENT TOOK ONLY 1 OR 2 DOSES
     Route: 065
     Dates: start: 20020101

REACTIONS (2)
  - HEPATIC CIRRHOSIS [None]
  - WHITE BLOOD CELL COUNT DECREASED [None]
